FAERS Safety Report 8134419-2 (Version None)
Quarter: 2012Q1

REPORT INFORMATION
  Report Type: 
  Country: None (occurrence: None)
  Receive Date: 20120209
  Receipt Date: 20120130
  Transmission Date: 20120608
  Serious: Yes (Other)
  Sender: FDA-Public Use
  Company Number: 2011MA001990

PATIENT
  Sex: Female
  Weight: 90.7194 kg

DRUGS (25)
  1. SYMBICORT [Concomitant]
  2. XOPENEX [Concomitant]
  3. HYDROCODONE [Concomitant]
  4. MELOXICAM [Concomitant]
  5. METHYLPHENIDATE [Concomitant]
  6. LORAZEPAM [Concomitant]
  7. NEXIUM [Concomitant]
  8. METOCLOPRAMIDE [Suspect]
     Indication: GASTROOESOPHAGEAL REFLUX DISEASE
     Dosage: 10 MG, QID, PO
     Route: 048
     Dates: start: 20080417, end: 20091101
  9. ZOLPIDEM [Concomitant]
  10. GEODON [Concomitant]
  11. HYDROCHLOROTHIAZIDE [Concomitant]
  12. ABILIFY [Concomitant]
  13. IRON [Concomitant]
  14. PREVACID [Concomitant]
  15. APAP TAB [Concomitant]
  16. BROMOCRIPTINE MESYLATE [Concomitant]
  17. DEPAKOTE [Concomitant]
  18. LEXAPRO [Concomitant]
  19. TOPAMAX [Concomitant]
  20. TRAMADOL HCL [Concomitant]
  21. DIOVAN [Concomitant]
  22. AVELOX [Concomitant]
  23. NEXIUM [Concomitant]
  24. SEROQUEL [Concomitant]
  25. TEGRETOL [Concomitant]

REACTIONS (20)
  - IMPAIRED GASTRIC EMPTYING [None]
  - EXTRAPYRAMIDAL DISORDER [None]
  - ABDOMINAL PAIN [None]
  - DIARRHOEA [None]
  - PERIODIC LIMB MOVEMENT DISORDER [None]
  - TARDIVE DYSKINESIA [None]
  - SOMNOLENCE [None]
  - DEPRESSION [None]
  - NAUSEA [None]
  - EMOTIONAL DISORDER [None]
  - ANXIETY [None]
  - NIGHTMARE [None]
  - EXCESSIVE EYE BLINKING [None]
  - TREMOR [None]
  - GASTROOESOPHAGEAL REFLUX DISEASE [None]
  - DRY MOUTH [None]
  - ECONOMIC PROBLEM [None]
  - POOR QUALITY SLEEP [None]
  - HEADACHE [None]
  - VOMITING [None]
